FAERS Safety Report 23644702 (Version 2)
Quarter: 2024Q1

REPORT INFORMATION
  Report Type: Report from Study
  Country: US (occurrence: US)
  Receive Date: 20240318
  Receipt Date: 20240328
  Transmission Date: 20240409
  Serious: Yes (Other)
  Sender: FDA-Public Use
  Company Number: US-OTSUKA-2024_004409

PATIENT
  Sex: Female

DRUGS (1)
  1. TOLVAPTAN [Suspect]
     Active Substance: TOLVAPTAN
     Indication: Congenital cystic kidney disease
     Dosage: 15 MG, BID
     Route: 065
     Dates: start: 20210915, end: 20240214

REACTIONS (3)
  - Azotaemia [Unknown]
  - Blood potassium increased [Unknown]
  - Underdose [Unknown]

NARRATIVE: CASE EVENT DATE: 20210915
